FAERS Safety Report 24019405 (Version 2)
Quarter: 2025Q2

REPORT INFORMATION
  Report Type: Spontaneous
  Country: FR (occurrence: FR)
  Receive Date: 20240627
  Receipt Date: 20250521
  Transmission Date: 20250716
  Serious: Yes (Other)
  Sender: TEVA
  Company Number: FR-TEVA-VS-3213102

PATIENT
  Age: 54 Year
  Sex: Male

DRUGS (1)
  1. FESOTERODINE [Suspect]
     Active Substance: FESOTERODINE
     Indication: Product used for unknown indication
     Route: 065

REACTIONS (3)
  - Urinary retention [Recovered/Resolved]
  - Product dispensing error [Unknown]
  - Product administration error [Unknown]
